FAERS Safety Report 11777875 (Version 1)
Quarter: 2015Q4

REPORT INFORMATION
  Report Type: Spontaneous
  Country: US (occurrence: US)
  Receive Date: 20151125
  Receipt Date: 20151125
  Transmission Date: 20160304
  Serious: Yes (Other)
  Sender: FDA-Public Use
  Company Number: US-ASTRAZENECA-2015SF12827

PATIENT
  Age: 67 Year
  Sex: Female
  Weight: 81.6 kg

DRUGS (7)
  1. MOBIC [Concomitant]
     Active Substance: MELOXICAM
     Indication: PAIN
  2. PREDNISONE. [Concomitant]
     Active Substance: PREDNISONE
     Indication: NEUROPATHY PERIPHERAL
     Dates: start: 20151106
  3. CYMBALTA [Concomitant]
     Active Substance: DULOXETINE HYDROCHLORIDE
     Indication: NEUROPATHY PERIPHERAL
     Dates: start: 20151113
  4. CYMBALTA [Concomitant]
     Active Substance: DULOXETINE HYDROCHLORIDE
     Indication: DEPRESSION
     Dates: start: 20151113
  5. ARIMIDEX [Suspect]
     Active Substance: ANASTROZOLE
     Indication: BREAST CANCER
     Route: 048
     Dates: start: 201408
  6. CYMBALTA [Concomitant]
     Active Substance: DULOXETINE HYDROCHLORIDE
     Indication: ANXIETY
     Dates: start: 20151113
  7. OXYCODONE [Concomitant]
     Active Substance: OXYCODONE
     Indication: ARTHRALGIA

REACTIONS (15)
  - Pain [Unknown]
  - Limb discomfort [Unknown]
  - Hot flush [Unknown]
  - Asthenia [Unknown]
  - Head injury [Unknown]
  - Haematoma [Unknown]
  - Muscle spasms [Unknown]
  - Fall [Unknown]
  - Paraesthesia [Unknown]
  - Pruritus [Unknown]
  - Arthralgia [Unknown]
  - Gait disturbance [Unknown]
  - Abdominal pain upper [Unknown]
  - Myalgia [Unknown]
  - Hypoaesthesia [Unknown]

NARRATIVE: CASE EVENT DATE: 2014
